FAERS Safety Report 9493372 (Version 1)
Quarter: 2013Q3

REPORT INFORMATION
  Report Type: Spontaneous
  Country: CH (occurrence: CH)
  Receive Date: 20130902
  Receipt Date: 20130902
  Transmission Date: 20140515
  Serious: Yes (Hospitalization)
  Sender: FDA-Public Use
  Company Number: CH-JNJFOC-20130811151

PATIENT
  Age: 88 Year
  Sex: Male

DRUGS (3)
  1. ZYTIGA [Suspect]
     Indication: PROSTATE CANCER
     Route: 048
     Dates: start: 20130322, end: 20130719
  2. ZYTIGA [Suspect]
     Indication: PROSTATE CANCER
     Route: 048
     Dates: start: 20130322, end: 20130408
  3. PREDNISONE [Suspect]
     Indication: ADRENAL INSUFFICIENCY
     Route: 048
     Dates: start: 20130322

REACTIONS (9)
  - Atrial fibrillation [Recovered/Resolved]
  - Asthenia [Recovering/Resolving]
  - Liver injury [Recovering/Resolving]
  - Pulmonary embolism [Recovering/Resolving]
  - Pleural effusion [Recovered/Resolved]
  - Pneumonia [Recovered/Resolved]
  - Dehydration [Unknown]
  - Cardiac failure [Unknown]
  - Decreased appetite [Unknown]
